FAERS Safety Report 9827754 (Version 1)
Quarter: 2013Q4

REPORT INFORMATION
  Report Type: Spontaneous
  Country: US (occurrence: None)
  Receive Date: 20131120
  Receipt Date: 20131120
  Transmission Date: 20140711
  Serious: Yes (Other)
  Sender: FDA-Public Use
  Company Number: 1000047975

PATIENT
  Age: 49 Year
  Sex: Male

DRUGS (12)
  1. VIIBRYD [Suspect]
     Indication: DEPRESSION
     Dosage: 10MG (10 MG, 1 IN 1 D), ORAL
     Route: 048
     Dates: start: 20130628, end: 20130704
  2. VIIBRYD [Suspect]
     Indication: ANXIETY
     Dosage: 10MG (10 MG, 1 IN 1 D), ORAL
     Route: 048
     Dates: start: 20130628, end: 20130704
  3. VIIBRYD [Suspect]
     Indication: DEPRESSION
     Dosage: 40MG Z(40 MG, 1 IN 1 D), ORAL
     Route: 048
     Dates: start: 20130712, end: 20130726
  4. VIIBRYD [Suspect]
     Indication: ANXIETY
     Dosage: 40MG Z(40 MG, 1 IN 1 D), ORAL
     Route: 048
     Dates: start: 20130712, end: 20130726
  5. ASPIRIN (ACETYLSALICYLIC ACID) (ACETYLSALICYLIC ACID) [Concomitant]
  6. GLIPIZIDE (GLIPIZIDE) (GLIPIZIDE) [Concomitant]
  7. IMDUR (ISOSORBIDE MONONITRATE) (ISOSORBIDE MONONITRATE) [Concomitant]
  8. METFORMIN (METFORMIN) [Concomitant]
  9. METOPROLOL (METOPROLOL) (METOPROLOL) [Concomitant]
  10. NITROGLYCERIN (GLYCERYL TRINITRATE) (GLYCERYL TRINITRATE) [Concomitant]
  11. PERCOCET (OXYCODONE/ACETAMINOPHEN) (OXYCODONE/ACETAMINOPHEN) [Concomitant]
  12. XANAX [Concomitant]

REACTIONS (3)
  - Diarrhoea [None]
  - Hallucination [None]
  - Tremor [None]
